FAERS Safety Report 20407618 (Version 2)
Quarter: 2022Q1

REPORT INFORMATION
  Report Type: Spontaneous
  Country: IT (occurrence: IT)
  Receive Date: 20220131
  Receipt Date: 20220224
  Transmission Date: 20220424
  Serious: Yes (Other)
  Sender: FDA-Public Use
  Company Number: IT-002147023-NVSC2022IT016997

PATIENT
  Age: 67 Year
  Sex: Female

DRUGS (2)
  1. AIMOVIG [Suspect]
     Active Substance: ERENUMAB-AOOE
     Indication: Migraine
     Dosage: 70 MILLIGRAM (EVERY 28 DAYS)
     Route: 065
     Dates: start: 20191017, end: 202007
  2. AIMOVIG [Suspect]
     Active Substance: ERENUMAB-AOOE
     Dosage: 140 MILLIGRAM (EVERY 28 DAYS)
     Route: 065
     Dates: end: 20220117

REACTIONS (6)
  - Electrocardiogram ST segment depression [Unknown]
  - Cardiac discomfort [Unknown]
  - Supraventricular extrasystoles [Unknown]
  - Migraine [Unknown]
  - Palpitations [Unknown]
  - Blood pressure increased [Unknown]

NARRATIVE: CASE EVENT DATE: 20211101
